FAERS Safety Report 14957412 (Version 1)
Quarter: 2018Q2

REPORT INFORMATION
  Report Type: Spontaneous
  Country: GB (occurrence: GB)
  Receive Date: 20180531
  Receipt Date: 20180531
  Transmission Date: 20180711
  Serious: Yes (Other)
  Sender: FDA-Public Use
  Company Number: GB-TEVA-2018-GB-899756

PATIENT
  Age: 55 Year
  Sex: Female
  Weight: 74 kg

DRUGS (7)
  1. FENBID [Concomitant]
     Active Substance: IBUPROFEN
     Dosage: 3 DOSAGE FORMS DAILY; APPLY
     Route: 065
     Dates: start: 20180129, end: 20180226
  2. FLUOXETINE [Concomitant]
     Active Substance: FLUOXETINE HYDROCHLORIDE
     Dosage: 2 DOSAGE FORMS DAILY;
     Route: 065
     Dates: start: 20170719
  3. GABAPENTIN. [Suspect]
     Active Substance: GABAPENTIN
     Route: 048
     Dates: start: 20180220, end: 20180327
  4. AMLODIPINE [Concomitant]
     Active Substance: AMLODIPINE BESYLATE
     Dosage: 1 DOSAGE FORMS DAILY;
     Route: 065
     Dates: start: 20180129
  5. ATORVASTATIN [Concomitant]
     Active Substance: ATORVASTATIN
     Dosage: 1 DOSAGE FORMS DAILY;
     Route: 065
     Dates: start: 20170719
  6. ABASAGLAR [Concomitant]
     Active Substance: INSULIN GLARGINE
     Dosage: USE AS DIRECTED
     Route: 065
     Dates: start: 20170719
  7. RAMIPRIL. [Concomitant]
     Active Substance: RAMIPRIL
     Dosage: 2 DOSAGE FORMS DAILY;
     Route: 065
     Dates: start: 20171204

REACTIONS (1)
  - Parosmia [Recovered/Resolved]

NARRATIVE: CASE EVENT DATE: 20180327
